FAERS Safety Report 12924155 (Version 1)
Quarter: 2016Q4

REPORT INFORMATION
  Report Type: Report from Study
  Country: US (occurrence: US)
  Receive Date: 20161109
  Receipt Date: 20161109
  Transmission Date: 20170207
  Serious: Yes (Other)
  Sender: FDA-Public Use
  Company Number: US-ELI_LILLY_AND_COMPANY-US201312000121

PATIENT

DRUGS (14)
  1. IBUPROFEN. [Concomitant]
     Active Substance: IBUPROFEN
     Dosage: 800 MG, BID
     Route: 065
  2. LORATADINE. [Concomitant]
     Active Substance: LORATADINE
     Dosage: 10 MG, QD
     Route: 065
  3. CYMBALTA [Suspect]
     Active Substance: DULOXETINE HYDROCHLORIDE
     Indication: FIBROMYALGIA
     Dosage: 90 MG, UNKNOWN
     Route: 065
     Dates: start: 2004
  4. CLONAZEPAM. [Concomitant]
     Active Substance: CLONAZEPAM
     Dosage: 1 MG, BID
     Route: 065
  5. TRAMADOL HYDROCHLORIDE. [Concomitant]
     Active Substance: TRAMADOL HYDROCHLORIDE
     Dosage: 50 MG, BID
     Route: 065
  6. SIMVASTATIN. [Concomitant]
     Active Substance: SIMVASTATIN
     Dosage: 20 MG, QD
     Route: 065
  7. ZITHROMAX [Concomitant]
     Active Substance: AZITHROMYCIN DIHYDRATE
     Dosage: 250 MG, QD
     Route: 065
  8. LIDODERM [Concomitant]
     Active Substance: LIDOCAINE
     Dosage: 1 DF, QD
     Route: 065
  9. CYMBALTA [Suspect]
     Active Substance: DULOXETINE HYDROCHLORIDE
     Indication: BIPOLAR DISORDER
     Dosage: 90 MG, UNKNOWN
     Route: 065
     Dates: start: 20140115
  10. SEROQUEL [Concomitant]
     Active Substance: QUETIAPINE FUMARATE
     Dosage: 100 MG, QD
     Route: 065
  11. PERCOCET                           /00446701/ [Concomitant]
     Active Substance: ACETAMINOPHEN\OXYCODONE HYDROCHLORIDE\OXYCODONE TEREPHTHALATE
     Dosage: 1 DF, EVERY 6 HRS
  12. METHOCARBAMOL. [Concomitant]
     Active Substance: METHOCARBAMOL
     Dosage: 750 MG, EVERY 6 HRS
     Route: 065
  13. NORCO [Concomitant]
     Active Substance: ACETAMINOPHEN\HYDROCODONE BITARTRATE
     Dosage: 1 DF, EVERY 4 HRS
     Route: 065
  14. LACTULOSE. [Concomitant]
     Active Substance: LACTULOSE
     Dosage: 20 MG, EVERY 6 HRS
     Route: 065

REACTIONS (23)
  - Paraesthesia [Unknown]
  - Fatigue [Unknown]
  - Irritability [Unknown]
  - Dysphemia [Unknown]
  - Fall [Unknown]
  - Back pain [Unknown]
  - Confusional state [Unknown]
  - Anxiety [Unknown]
  - Gait disturbance [Unknown]
  - Diarrhoea [Unknown]
  - Disturbance in attention [Unknown]
  - Vomiting [Unknown]
  - Headache [Unknown]
  - Vision blurred [Unknown]
  - Insomnia [Unknown]
  - Nausea [Unknown]
  - Sensory disturbance [Unknown]
  - Agitation [Unknown]
  - Drug withdrawal syndrome [Unknown]
  - Pain in extremity [Unknown]
  - Dizziness [Unknown]
  - Suicidal ideation [Unknown]
  - Arthralgia [Unknown]
